FAERS Safety Report 24327639 (Version 1)
Quarter: 2024Q3

REPORT INFORMATION
  Report Type: Spontaneous
  Country: US (occurrence: US)
  Receive Date: 20240917
  Receipt Date: 20240917
  Transmission Date: 20241017
  Serious: No
  Sender: BAYER
  Company Number: US-BAYER-2024A130875

PATIENT
  Age: 94 Year
  Sex: Female

DRUGS (2)
  1. MIRALAX [Suspect]
     Active Substance: POLYETHYLENE GLYCOL 3350
     Indication: Gastrointestinal disorder
     Dosage: 17 G
     Route: 048
     Dates: start: 20240909, end: 20240912
  2. MIRALAX [Suspect]
     Active Substance: POLYETHYLENE GLYCOL 3350
     Indication: Constipation prophylaxis

REACTIONS (3)
  - Faeces discoloured [Not Recovered/Not Resolved]
  - Expired product administered [None]
  - Product use in unapproved indication [None]

NARRATIVE: CASE EVENT DATE: 20240910
